FAERS Safety Report 4520096-6 (Version None)
Quarter: 2004Q4

REPORT INFORMATION
  Report Type: 
  Country: None (occurrence: None)
  Receive Date: 20041207
  Receipt Date: 20041015
  Transmission Date: 20050328
  Serious: Yes (Hospitalization)
  Sender: FDA-Public Use
  Company Number: DE-BRISTOL-MYERS SQUIBB COMPANY-12737805

PATIENT
  Age: 73 Year
  Sex: Male

DRUGS (2)
  1. CETUXIMAB [Suspect]
     Indication: COLORECTAL CANCER METASTATIC
     Dosage: PT HAD REC'D 15 TX TO DATE. DOSE DELAYED/THEN D/C'D ON 28-OCT-04 DUE TO PD
     Route: 041
     Dates: start: 20040622, end: 20041005
  2. IRINOTECAN [Suspect]
     Indication: COLORECTAL CANCER METASTATIC
     Dosage: DOSE DELAYED/THEN DISCONTINUED DUE TO PD ON 28-OCT-04.
     Route: 042
     Dates: start: 20040622, end: 20041005

REACTIONS (5)
  - ACNE [None]
  - BONE PAIN [None]
  - CONSTIPATION [None]
  - INTERVERTEBRAL DISCITIS [None]
  - MALIGNANT NEOPLASM PROGRESSION [None]
